FAERS Safety Report 5056319-7 (Version None)
Quarter: 2006Q3

REPORT INFORMATION
  Report Type: 
  Country: None (occurrence: None)
  Receive Date: 20060720
  Receipt Date: 20060628
  Transmission Date: 20061208
  Serious: Yes (Hospitalization)
  Sender: FDA-Public Use
  Company Number: PHEH2006US08530

PATIENT
  Age: 50 Year
  Sex: Female

DRUGS (4)
  1. GLEEVEC [Suspect]
     Indication: CHRONIC MYELOID LEUKAEMIA
     Dosage: UNK MG, QD
     Route: 048
     Dates: start: 20031126, end: 20060616
  2. VITAMIN E [Concomitant]
     Dosage: 100 MG, QD
     Route: 048
  3. VITAMIN CAP [Concomitant]
     Dosage: 1 DF, QD
     Route: 048
  4. ASCORBIC ACID [Concomitant]
     Dosage: 1 DF, QD
     Route: 048

REACTIONS (6)
  - BONE MARROW FAILURE [None]
  - EXPOSURE TO TOXIC AGENT [None]
  - HERPETIC STOMATITIS [None]
  - LIP HAEMORRHAGE [None]
  - ORAL FUNGAL INFECTION [None]
  - PANCYTOPENIA [None]
